FAERS Safety Report 21838302 (Version 1)
Quarter: 2023Q1

REPORT INFORMATION
  Report Type: Report from Study
  Country: ES (occurrence: ES)
  Receive Date: 20230109
  Receipt Date: 20230109
  Transmission Date: 20230418
  Serious: Yes (Hospitalization)
  Sender: FDA-Public Use
  Company Number: None

PATIENT
  Age: 44 Year
  Sex: Male

DRUGS (5)
  1. OMEPRAZOLE [Suspect]
     Active Substance: OMEPRAZOLE
     Indication: Polyarthritis
     Dosage: 40 MILLIGRAM, QD
     Route: 065
     Dates: start: 20070422, end: 20070426
  2. RANITIDINE [Suspect]
     Active Substance: RANITIDINE
     Indication: Polyarthritis
     Dosage: 300 MILLIGRAM, QD
     Route: 065
     Dates: start: 20070426, end: 20070427
  3. IBUPROFEN [Suspect]
     Active Substance: IBUPROFEN
     Indication: Polyarthritis
     Dosage: 1200 MILLIGRAM, QD
     Route: 065
     Dates: start: 20070422, end: 20070426
  4. TORADOL [Suspect]
     Active Substance: KETOROLAC TROMETHAMINE
     Indication: Polyarthritis
     Dosage: UNK, QD (PER THREE DAYS)
     Route: 065
     Dates: start: 20070423, end: 20070427
  5. METHYLPREDNISOLONE [Suspect]
     Active Substance: METHYLPREDNISOLONE
     Indication: Polyarthritis
     Dosage: 180 MILLIGRAM, QD
     Route: 065
     Dates: start: 20070424, end: 20070427

REACTIONS (1)
  - Angioedema [Recovered/Resolved]

NARRATIVE: CASE EVENT DATE: 20070426
